FAERS Safety Report 5086205-8 (Version None)
Quarter: 2006Q3

REPORT INFORMATION
  Report Type: 
  Country: None (occurrence: None)
  Receive Date: 20060818
  Receipt Date: 20060808
  Transmission Date: 20061208
  Serious: Yes (Hospitalization, Disabling)
  Sender: FDA-Public Use
  Company Number: 2005JP001490

PATIENT
  Age: 44 Year
  Sex: Male
  Weight: 47 kg

DRUGS (6)
  1. PROGRAF [Suspect]
     Indication: RENAL TRANSPLANT
     Dosage: 3.75 MG,  UID/QD, IV NOS
     Route: 042
     Dates: start: 20050222, end: 20050223
  2. PROGRAF [Suspect]
     Indication: RENAL TRANSPLANT
     Dosage: 6 MG, BDI, ORAL
     Route: 048
     Dates: start: 20050223
  3. CELLCEPT [Concomitant]
  4. MEDROL ACETATE [Concomitant]
  5. LOSARTAN POTASSIUM [Concomitant]
  6. GASTER [Concomitant]

REACTIONS (5)
  - ACTIVATED PARTIAL THROMBOPLASTIN TIME PROLONGED [None]
  - ARTHRALGIA [None]
  - GAIT DISTURBANCE [None]
  - PAIN IN EXTREMITY [None]
  - THROMBOPHLEBITIS SUPERFICIAL [None]
